FAERS Safety Report 4576295-0 (Version None)
Quarter: 2005Q1

REPORT INFORMATION
  Report Type: 
  Country: None (occurrence: None)
  Receive Date: 20050207
  Receipt Date: 20050125
  Transmission Date: 20050727
  Serious: Yes (Other)
  Sender: FDA-Public Use
  Company Number: 2004097668

PATIENT
  Sex: Female

DRUGS (1)
  1. CELEBREX [Suspect]
     Indication: BURSITIS
     Dosage: ORAL
     Route: 048

REACTIONS (3)
  - ADVERSE DRUG REACTION [None]
  - ARRHYTHMIA [None]
  - MYOCARDIAL INFARCTION [None]
